FAERS Safety Report 6580716-1 (Version None)
Quarter: 2010Q1

REPORT INFORMATION
  Report Type: 
  Country: None (occurrence: None)
  Receive Date: 20100212
  Receipt Date: 20100208
  Transmission Date: 20100710
  Serious: Yes (Other)
  Sender: FDA-Public Use
  Company Number: ES-MERCK-1002ESP00026

PATIENT
  Age: 82 Year
  Sex: Female
  Weight: 85 kg

DRUGS (1)
  1. JANUMET [Suspect]
     Indication: TYPE 1 DIABETES MELLITUS
     Route: 048
     Dates: start: 20090622, end: 20090625

REACTIONS (4)
  - ATAXIA [None]
  - DISORIENTATION [None]
  - HALLUCINATION [None]
  - NEUROLOGICAL SYMPTOM [None]
